FAERS Safety Report 10340424 (Version 2)
Quarter: 2014Q3

REPORT INFORMATION
  Report Type: Spontaneous
  Country: US (occurrence: US)
  Receive Date: 20140724
  Receipt Date: 20140724
  Transmission Date: 20150326
  Serious: Yes (Hospitalization, Other)
  Sender: FDA-Public Use
  Company Number: US-009507513-2010SP016190

PATIENT
  Sex: Female
  Weight: 112.95 kg

DRUGS (4)
  1. NUVARING [Suspect]
     Active Substance: ETHINYL ESTRADIOL\ETONOGESTREL
     Dosage: UNK
     Route: 067
     Dates: start: 2006
  2. NUVARING [Suspect]
     Active Substance: ETHINYL ESTRADIOL\ETONOGESTREL
     Dosage: UNK
     Route: 067
     Dates: start: 20050823
  3. NUVARING [Suspect]
     Active Substance: ETHINYL ESTRADIOL\ETONOGESTREL
     Indication: CONTRACEPTION
     Route: 067
     Dates: start: 200802, end: 20080318
  4. NUVARING [Suspect]
     Active Substance: ETHINYL ESTRADIOL\ETONOGESTREL
     Dosage: UNK
     Route: 067
     Dates: start: 2004

REACTIONS (12)
  - Pulmonary infarction [Unknown]
  - Heart rate irregular [Unknown]
  - Systemic lupus erythematosus [Not Recovered/Not Resolved]
  - Cervical dysplasia [Unknown]
  - Unintended pregnancy [Not Recovered/Not Resolved]
  - Papilloma viral infection [Unknown]
  - Pulmonary embolism [Unknown]
  - Abortion incomplete [Recovered/Resolved]
  - Hallucination [Unknown]
  - Hypercoagulation [Unknown]
  - Deep vein thrombosis [Unknown]
  - Mental status changes [Unknown]

NARRATIVE: CASE EVENT DATE: 2006
